FAERS Safety Report 10348410 (Version 4)
Quarter: 2014Q4

REPORT INFORMATION
  Report Type: Spontaneous
  Country: US (occurrence: US)
  Receive Date: 20140729
  Receipt Date: 20141028
  Transmission Date: 20150528
  Serious: Yes (Hospitalization, Other)
  Sender: FDA-Public Use
  Company Number: US-ASTRAZENECA-2011SE75308

PATIENT
  Age: 55 Year
  Sex: Male
  Weight: 97.5 kg

DRUGS (10)
  1. COUMADIN [Suspect]
     Active Substance: WARFARIN SODIUM
     Route: 048
     Dates: start: 201405
  2. FUROSEMIDE. [Suspect]
     Active Substance: FUROSEMIDE
     Dosage: HALF OF 40MG UNK
     Route: 065
     Dates: start: 201406
  3. PRADAXA [Concomitant]
     Active Substance: DABIGATRAN ETEXILATE MESYLATE
  4. SYMBICORT [Suspect]
     Active Substance: BUDESONIDE\FORMOTEROL FUMARATE DIHYDRATE
     Indication: CHRONIC OBSTRUCTIVE PULMONARY DISEASE
     Dosage: 160/4.5 MCG, 2 PUFF, TWO TIMES A DAY
     Route: 055
  5. METOPROLOL SUCCINATE ER [Suspect]
     Active Substance: METOPROLOL SUCCINATE
     Indication: CARDIAC FAILURE
     Route: 048
     Dates: start: 201406
  6. METOPROLOL TARTRATE. [Concomitant]
     Active Substance: METOPROLOL TARTRATE
  7. SYMBICORT [Suspect]
     Active Substance: BUDESONIDE\FORMOTEROL FUMARATE DIHYDRATE
     Indication: CHRONIC OBSTRUCTIVE PULMONARY DISEASE
     Dosage: 160/4.5 MCG, 1 PUFF, TWO TIMES A DAY
     Route: 055
  8. ASPIRIN. [Concomitant]
     Active Substance: ASPIRIN
     Dates: start: 201406
  9. FUROSEMIDE. [Suspect]
     Active Substance: FUROSEMIDE
     Dosage: FULL OF 40MG UNK
     Route: 065
  10. DIGOXIN. [Concomitant]
     Active Substance: DIGOXIN

REACTIONS (23)
  - Peripheral swelling [Unknown]
  - Pollakiuria [Unknown]
  - Feeling abnormal [Recovered/Resolved]
  - Pruritus [Recovered/Resolved]
  - Nephrolithiasis [Recovered/Resolved]
  - Malaise [Unknown]
  - Cough [Unknown]
  - Discomfort [Unknown]
  - Drug dose omission [Not Recovered/Not Resolved]
  - Cardiac failure [Not Recovered/Not Resolved]
  - General physical condition abnormal [Unknown]
  - Gait disturbance [Unknown]
  - Off label use [Unknown]
  - Impaired work ability [Unknown]
  - Heart rate increased [Unknown]
  - Intentional product misuse [Unknown]
  - Pain [Unknown]
  - Wheezing [Unknown]
  - Drug hypersensitivity [Not Recovered/Not Resolved]
  - Thrombosis [Unknown]
  - Influenza [Unknown]
  - Atrial fibrillation [Not Recovered/Not Resolved]
  - Petechiae [Recovered/Resolved]

NARRATIVE: CASE EVENT DATE: 2014
